FAERS Safety Report 17754283 (Version 4)
Quarter: 2020Q3

REPORT INFORMATION
  Report Type: Spontaneous
  Country: US (occurrence: US)
  Receive Date: 20200507
  Receipt Date: 20200908
  Transmission Date: 20201102
  Serious: No
  Sender: FDA-Public Use
  Company Number: US-AMGEN-USASP2020070801

PATIENT
  Age: 59 Year
  Sex: Male
  Weight: 90.7 kg

DRUGS (2)
  1. REPATHA [Suspect]
     Active Substance: EVOLOCUMAB
     Dosage: 420 MILLIGRAM
     Route: 065
  2. REPATHA [Suspect]
     Active Substance: EVOLOCUMAB
     Indication: PRODUCT USED FOR UNKNOWN INDICATION
     Dosage: 420 MILLIGRAM
     Route: 065

REACTIONS (3)
  - Incorrect dose administered by device [Unknown]
  - Device use error [Unknown]
  - Device defective [Unknown]

NARRATIVE: CASE EVENT DATE: 20200429
